FAERS Safety Report 5302724-0 (Version None)
Quarter: 2007Q2

REPORT INFORMATION
  Report Type: 
  Country: None (occurrence: None)
  Receive Date: 20070419
  Receipt Date: 20070410
  Transmission Date: 20071010
  Serious: Yes (Hospitalization, Other)
  Sender: FDA-Public Use
  Company Number: US-PFIZER INC-2007028618

PATIENT
  Sex: Male
  Weight: 131.5 kg

DRUGS (1)
  1. BEXTRA [Suspect]
     Indication: ARTHRITIS

REACTIONS (2)
  - CARDIOVASCULAR DISORDER [None]
  - CEREBROVASCULAR ACCIDENT [None]
